FAERS Safety Report 6893254-3 (Version None)
Quarter: 2010Q3

REPORT INFORMATION
  Report Type: 
  Country: None (occurrence: None)
  Receive Date: 20100731
  Receipt Date: 20090721
  Transmission Date: 20110219
  Serious: No
  Sender: FDA-Public Use
  Company Number: US-PFIZER INC-2009221652

PATIENT
  Sex: Male

DRUGS (7)
  1. AMLODIPINE BESYLATE [Suspect]
     Dosage: 5 MG, 1X/DAY
     Route: 048
  2. ATENOLOL [Suspect]
     Dosage: 100 MG, 1X/DAY
     Route: 048
  3. PACERONE [Suspect]
     Indication: ATRIAL FIBRILLATION
     Dosage: 200 MG, 1X/DAY
     Dates: start: 20010101
  4. WARFARIN [Suspect]
     Indication: ATRIAL FIBRILLATION
     Dosage: 6 MG QD ON THREE DAYS OF THE WEEK, 3 MG QD ON ALL OTHER DAYS OF THE WEEK
     Route: 048
     Dates: start: 20010101
  5. AMARYL [Concomitant]
     Dosage: UNK
  6. AVODART [Concomitant]
     Dosage: UNK
  7. ATACAND [Concomitant]
     Dosage: UNK

REACTIONS (7)
  - CONTUSION [None]
  - GAIT DISTURBANCE [None]
  - HYPOAESTHESIA [None]
  - JOINT SWELLING [None]
  - PARAESTHESIA [None]
  - SKIN BURNING SENSATION [None]
  - SKIN DISCOLOURATION [None]
